FAERS Safety Report 6871467-4 (Version None)
Quarter: 2010Q3

REPORT INFORMATION
  Report Type: 
  Country: None (occurrence: None)
  Receive Date: 20100723
  Receipt Date: 20100712
  Transmission Date: 20110219
  Serious: Yes (Death)
  Sender: FDA-Public Use
  Company Number: US-BAYER-201024497NA

PATIENT
  Age: 54 Year
  Sex: Female

DRUGS (15)
  1. MAGNEVIST [Suspect]
     Indication: IMAGING PROCEDURE
  2. OMNISCAN [Suspect]
     Indication: IMAGING PROCEDURE
  3. OPTIMARK [Suspect]
     Indication: IMAGING PROCEDURE
  4. MULTIHANCE [Suspect]
     Indication: IMAGING PROCEDURE
  5. PROHANCE [Suspect]
     Indication: IMAGING PROCEDURE
  6. UNSPECIFIED GBCA [Suspect]
     Dates: start: 20040806, end: 20040806
  7. UNSPECIFIED GBCA [Suspect]
     Dates: start: 20040812, end: 20040812
  8. RENVELA [Concomitant]
     Dosage: 4 TABS TID
  9. SYNTHROID [Concomitant]
  10. SENSIPAR [Concomitant]
  11. MIDODRINE HYDROCHLORIDE [Concomitant]
  12. LEXAPRO [Concomitant]
  13. LEVOTHYROXINE SODIUM [Concomitant]
  14. GABAPENTIN [Concomitant]
  15. LEVOFLOXACIN [Concomitant]

REACTIONS (22)
  - ARTHRALGIA [None]
  - ARTHRITIS [None]
  - BONE PAIN [None]
  - BURNING SENSATION [None]
  - DEFORMITY [None]
  - FIBROSIS [None]
  - GENERAL PHYSICAL HEALTH DETERIORATION [None]
  - JOINT STIFFNESS [None]
  - MOBILITY DECREASED [None]
  - MUSCULAR WEAKNESS [None]
  - MUSCULOSKELETAL STIFFNESS [None]
  - MYALGIA [None]
  - NEPHROGENIC SYSTEMIC FIBROSIS [None]
  - OEDEMA [None]
  - OEDEMA PERIPHERAL [None]
  - PAIN [None]
  - PAIN IN EXTREMITY [None]
  - SCAR [None]
  - SKIN HYPERPIGMENTATION [None]
  - SKIN INDURATION [None]
  - SKIN TIGHTNESS [None]
  - SWELLING [None]
